FAERS Safety Report 8150947-8 (Version None)
Quarter: 2012Q1

REPORT INFORMATION
  Report Type: 
  Country: None (occurrence: None)
  Receive Date: 20120220
  Receipt Date: 20120209
  Transmission Date: 20120608
  Serious: Yes (Hospitalization, Other)
  Sender: FDA-Public Use
  Company Number: US-BAXTER-2012BH003328

PATIENT
  Sex: Female

DRUGS (2)
  1. DIANEAL [Suspect]
     Indication: PERITONEAL DIALYSIS
     Route: 033
     Dates: start: 20111118
  2. DIANEAL [Suspect]
     Indication: PERITONEAL DIALYSIS
     Route: 033
     Dates: start: 20111118

REACTIONS (8)
  - VOMITING [None]
  - ABDOMINAL INFECTION [None]
  - DIARRHOEA [None]
  - BACTERIAL INFECTION [None]
  - PERITONEAL CLOUDY EFFLUENT [None]
  - HYPOTENSION [None]
  - NAUSEA [None]
  - SEPSIS [None]
